FAERS Safety Report 15950031 (Version 2)
Quarter: 2019Q1

REPORT INFORMATION
  Report Type: Spontaneous
  Country: US (occurrence: US)
  Receive Date: 20190211
  Receipt Date: 20190213
  Transmission Date: 20190417
  Serious: Yes (Death)
  Sender: FDA-Public Use
  Company Number: US-PFIZER INC-2019058596

PATIENT
  Age: 59 Year
  Sex: Male

DRUGS (3)
  1. CCNU [Suspect]
     Active Substance: LOMUSTINE
     Indication: SMALL CELL LUNG CANCER
     Dosage: 100 MG/M2, CYCLIC (EVERY SIX WEEKS, CYCLIC CHEMOTHERAPY)
     Route: 048
     Dates: start: 197709, end: 197907
  2. METHOTREXATE. [Suspect]
     Active Substance: METHOTREXATE
     Indication: SMALL CELL LUNG CANCER
     Dosage: 15 MG/M2, 2X/WEEK (CYCLIC CHEMOTHERAPY)
     Route: 048
     Dates: start: 197709, end: 197907
  3. CYCLOPHOSPHAMIDE. [Suspect]
     Active Substance: CYCLOPHOSPHAMIDE
     Indication: SMALL CELL LUNG CANCER
     Dosage: 1000 MG/M2, EVERY 3 WEEKS (CYCLIC CHEMOTHERAPY)
     Route: 042
     Dates: start: 197709, end: 197907

REACTIONS (1)
  - Myeloid leukaemia [Fatal]

NARRATIVE: CASE EVENT DATE: 1980
